FAERS Safety Report 4450221-7 (Version None)
Quarter: 2004Q3

REPORT INFORMATION
  Report Type: 
  Country: None (occurrence: None)
  Receive Date: 20040914
  Receipt Date: 20040903
  Transmission Date: 20050211
  Serious: Yes (Disabling)
  Sender: FDA-Public Use
  Company Number: 2001066170IE

PATIENT
  Age: 60 Year
  Sex: Male

DRUGS (7)
  1. CAMPTOSAR [Suspect]
     Indication: COLON CANCER
     Dosage: 340 MG, CYCLIC, IV
     Route: 042
     Dates: start: 20010614, end: 20010614
  2. LEUCOVORIN CALCIUM [Suspect]
     Indication: COLON CANCER
     Dosage: 380 MG, CYCLIC, IV
     Route: 042
     Dates: start: 20010614, end: 20010614
  3. LEUCOVORIN CALCIUM [Suspect]
     Indication: COLON CANCER
     Dosage: 380 MG, CYCLIC, IV
     Route: 042
     Dates: start: 20010618, end: 20010619
  4. FLUOROURACIL [Suspect]
     Indication: COLON CANCER
     Dosage: 750 MG, SEE IMAGE
     Route: 040
     Dates: start: 20010618, end: 20010619
  5. FLUOROURACIL [Suspect]
     Indication: COLON CANCER
     Dosage: 750 MG, SEE IMAGE
     Route: 040
     Dates: start: 20010618, end: 20010619
  6. WARFARIN SODIUM [Concomitant]
  7. ATROPINE [Concomitant]

REACTIONS (6)
  - ANOREXIA [None]
  - DIARRHOEA [None]
  - FATIGUE [None]
  - HEPATOTOXICITY [None]
  - VOMITING [None]
  - WEIGHT DECREASED [None]
